FAERS Safety Report 23723291 (Version 2)
Quarter: 2024Q2

REPORT INFORMATION
  Report Type: Spontaneous
  Country: US (occurrence: US)
  Receive Date: 20240409
  Receipt Date: 20240419
  Transmission Date: 20240715
  Serious: Yes (Other)
  Sender: FDA-Public Use
  Company Number: US-BRISTOL-MYERS SQUIBB COMPANY-2024-055762

PATIENT
  Age: 80 Year
  Sex: Female

DRUGS (1)
  1. REVLIMID [Suspect]
     Active Substance: LENALIDOMIDE
     Indication: Plasma cell myeloma
     Dosage: FREQUENCY: TAKE 1 CAPSULE BY MOUTH WHOLE WITH WATER AT THE SAME TIME DAILY ON DAYS 1-21 OF EACH 28 D
     Route: 048

REACTIONS (13)
  - Renal disorder [Recovered/Resolved]
  - Diarrhoea [Recovered/Resolved]
  - Ulcer [Recovered/Resolved]
  - Spinal pain [Recovered/Resolved]
  - Fatigue [Recovered/Resolved]
  - Pneumonia [Recovered/Resolved]
  - Asthenia [Recovered/Resolved]
  - Pain [Recovered/Resolved]
  - Constipation [Recovered/Resolved]
  - Abdominal discomfort [Recovered/Resolved]
  - Insomnia [Recovered/Resolved]
  - Joint neoplasm [Recovered/Resolved]
  - Arthralgia [Recovered/Resolved]

NARRATIVE: CASE EVENT DATE: 20240101
